FAERS Safety Report 7955579-X (Version None)
Quarter: 2011Q4

REPORT INFORMATION
  Report Type: 
  Country: None (occurrence: None)
  Receive Date: 20111202
  Receipt Date: 20111128
  Transmission Date: 20120403
  Serious: Yes (Life-Threatening)
  Sender: FDA-Public Use
  Company Number: US-ASTRAZENECA-2011SE60675

PATIENT
  Age: 48 Year
  Sex: Female
  Weight: 100.7 kg

DRUGS (33)
  1. SEROQUEL [Suspect]
     Indication: SLEEP DISORDER
     Route: 048
     Dates: start: 20070101
  2. SEROQUEL [Suspect]
     Route: 048
     Dates: start: 20091201
  3. XANAX [Concomitant]
     Indication: ANXIETY
     Dates: start: 20110601
  4. LYRICA [Concomitant]
     Dates: start: 20080408
  5. ULTRAM [Concomitant]
     Indication: PAIN MANAGEMENT
     Dosage: 1 OR 2 EVERY 6 HORS
     Dates: start: 20100107
  6. MIRAPEX [Concomitant]
     Indication: RESTLESS LEGS SYNDROME
     Dates: start: 20080808
  7. CYMBALTA [Concomitant]
     Indication: ANALGESIC THERAPY
     Dates: start: 20091101
  8. ADVAIR DISKUS 100/50 [Concomitant]
     Indication: HEART DISEASE CONGENITAL
     Dosage: 250/50 DISKUS BREATHE TWICE DAILY
     Dates: start: 20091101
  9. PENNSAID [Concomitant]
     Indication: PAIN
     Dosage: 16.05 MG APPLY TO JOINTS AS NEEDE3D
  10. PHENERGAN [Concomitant]
     Indication: NAUSEA
     Dates: start: 20080501
  11. LYRICA [Concomitant]
     Indication: PAIN MANAGEMENT
  12. LASIX [Concomitant]
     Indication: DIURETIC THERAPY
     Dates: start: 20081101
  13. SEROQUEL [Suspect]
     Indication: BIPOLAR DISORDER
     Route: 048
     Dates: start: 20070101
  14. SOMA [Concomitant]
     Indication: MUSCLE RELAXANT THERAPY
  15. PLAQUENIL [Concomitant]
     Indication: SYSTEMIC LUPUS ERYTHEMATOSUS
     Dates: start: 20100520
  16. SPIRIVA [Concomitant]
     Indication: HYPERSENSITIVITY
     Dates: start: 20090501
  17. VOLTAREN [Concomitant]
     Indication: PAIN MANAGEMENT
     Route: 061
     Dates: start: 20090501
  18. LIDOCAINE HCL [Concomitant]
     Dosage: SWISH AND SPIT AS NEEDED
     Route: 048
  19. SEROQUEL [Suspect]
     Indication: DEPRESSION
     Route: 048
     Dates: start: 20070101
  20. SEROQUEL [Suspect]
     Indication: MOOD SWINGS
     Route: 048
     Dates: start: 20070101
  21. BUTRANS [Concomitant]
     Indication: PAIN MANAGEMENT
     Dates: start: 20110501
  22. ORENCIA [Concomitant]
     Indication: RHEUMATOID ARTHRITIS
     Dosage: MONTHLY
     Route: 042
     Dates: start: 20110501
  23. SEROQUEL [Suspect]
     Route: 048
     Dates: start: 20091201
  24. PRILOSEC [Suspect]
     Indication: REFLUX LARYNGITIS
     Dosage: 40 MG BEFORE BREAKFAST AND 40 MG BEFORE DINNER
     Route: 048
     Dates: start: 20090601
  25. SOMA [Concomitant]
     Dates: start: 20101107
  26. LYRICA [Concomitant]
     Indication: FIBROMYALGIA
  27. LYRICA [Concomitant]
     Dates: start: 20080408
  28. FLECTOR [Concomitant]
     Indication: PAIN MANAGEMENT
     Dates: start: 20090201
  29. XYZAL [Concomitant]
     Indication: HYPERSENSITIVITY
     Dosage: 5 MG DAILY AS NEEDED
     Dates: start: 20090501
  30. SEROQUEL [Suspect]
     Route: 048
     Dates: start: 20091201
  31. SEROQUEL [Suspect]
     Route: 048
     Dates: start: 20091201
  32. XANAX [Concomitant]
     Indication: MOOD SWINGS
     Dates: start: 20110601
  33. CYMBALTA [Concomitant]
     Indication: DEPRESSION
     Dates: start: 20091101

REACTIONS (9)
  - HYPERTENSION [None]
  - INSOMNIA [None]
  - OSTEOPOROSIS [None]
  - VERTIGO [None]
  - DIABETES MELLITUS [None]
  - DRUG DOSE OMISSION [None]
  - PULSE ABSENT [None]
  - OFF LABEL USE [None]
  - RESPIRATORY ARREST [None]
